FAERS Safety Report 7319742-3 (Version None)
Quarter: 2011Q1

REPORT INFORMATION
  Report Type: 
  Country: None (occurrence: None)
  Receive Date: 20110228
  Receipt Date: 20100901
  Transmission Date: 20110831
  Serious: No
  Sender: FDA-Public Use
  Company Number: A0878953A

PATIENT
  Age: 53 Year
  Sex: Female

DRUGS (6)
  1. SEROQUEL [Concomitant]
  2. SOMA [Concomitant]
  3. VICODIN [Concomitant]
  4. LAMICTAL [Suspect]
     Indication: BIPOLAR DISORDER
     Dosage: 25MG PER DAY
     Route: 048
     Dates: start: 20100601
  5. CHASTE TREE BERRY [Concomitant]
  6. LITHIUM [Concomitant]

REACTIONS (2)
  - EXPIRED DRUG ADMINISTERED [None]
  - ANXIETY [None]
